FAERS Safety Report 8563154 (Version 4)
Quarter: 2013Q3

REPORT INFORMATION
  Report Type: Spontaneous
  Country: US (occurrence: US)
  Receive Date: 20120515
  Receipt Date: 20130806
  Transmission Date: 20140515
  Serious: Yes (Hospitalization, Other)
  Sender: FDA-Public Use
  Company Number: US-ROCHE-783690

PATIENT
  Age: 16 Year
  Sex: Male
  Weight: 61.29 kg

DRUGS (2)
  1. ACCUTANE [Suspect]
     Indication: ACNE
     Route: 065
     Dates: start: 199409, end: 199501
  2. ACCUTANE [Suspect]
     Route: 065
     Dates: start: 19950825, end: 199602

REACTIONS (28)
  - Colitis ulcerative [Unknown]
  - Inflammatory bowel disease [Unknown]
  - Stress [Unknown]
  - Perirectal abscess [Unknown]
  - Anorectal stenosis [Unknown]
  - Large intestine polyp [Unknown]
  - Depression [Unknown]
  - Diverticulum [Unknown]
  - Irritable bowel syndrome [Unknown]
  - Fatigue [Unknown]
  - Sunburn [Unknown]
  - Chapped lips [Unknown]
  - Headache [Unknown]
  - Skin exfoliation [Unknown]
  - Blood alkaline phosphatase increased [Unknown]
  - Arthralgia [Unknown]
  - Dry skin [Unknown]
  - Nasal dryness [Unknown]
  - Skin exfoliation [Unknown]
  - Appetite disorder [Unknown]
  - Lip dry [Unknown]
  - Pruritus [Unknown]
  - Rash [Unknown]
  - Eye irritation [Unknown]
  - Insomnia [Unknown]
  - Nausea [Unknown]
  - Skin fragility [Unknown]
  - Dry mouth [Unknown]
